FAERS Safety Report 4649737-X (Version None)
Quarter: 2005Q2

REPORT INFORMATION
  Report Type: 
  Country: None (occurrence: None)
  Receive Date: 20050427
  Receipt Date: 20050413
  Transmission Date: 20051028
  Serious: Yes (Other)
  Sender: FDA-Public Use
  Company Number: DE-2005-005439

PATIENT
  Age: 57 Year
  Sex: Male
  Weight: 100 kg

DRUGS (6)
  1. ULTRAVIST 370 [Suspect]
     Indication: CATHETERISATION CARDIAC
     Dosage: 160 ML, 1 DOSE, INTRACORONARY
     Route: 022
     Dates: start: 20050223, end: 20050223
  2. NORVASC [Concomitant]
  3. PENTAERYTHIRITOL TETRANITRATE TAB [Concomitant]
  4. ACETYLSALICYLIC ACID SRT [Concomitant]
  5. DICLOFENAC SODIUM [Concomitant]
  6. PANTOPRAZOLE SODIUM [Concomitant]

REACTIONS (5)
  - ANGINA PECTORIS [None]
  - ARTERIOSPASM CORONARY [None]
  - BLOOD PRESSURE DECREASED [None]
  - BRADYCARDIA [None]
  - ELECTROCARDIOGRAM ST SEGMENT ELEVATION [None]
